FAERS Safety Report 7315315-7 (Version None)
Quarter: 2011Q1

REPORT INFORMATION
  Report Type: 
  Country: None (occurrence: None)
  Receive Date: 20110225
  Receipt Date: 20110215
  Transmission Date: 20110831
  Serious: Yes (Other)
  Sender: FDA-Public Use
  Company Number: PHEH2008US03155

PATIENT
  Sex: Female

DRUGS (31)
  1. KYTRIL [Concomitant]
  2. MEDROXYPROGESTERONE [Concomitant]
     Dosage: 10 MG, UNK
  3. ROXICET [Concomitant]
  4. FASLODEX [Concomitant]
  5. NEULASTA [Concomitant]
  6. ABRAXANE [Concomitant]
  7. AROMASIN [Concomitant]
  8. FOSAMAX [Concomitant]
  9. AMOXICILLIN [Concomitant]
     Dosage: 500 MG, UNK
  10. NEUPOGEN [Concomitant]
  11. SKELAXIN [Concomitant]
     Dosage: 800 MG, UNK
  12. CLARITHROMYCIN [Concomitant]
  13. DETROL [Concomitant]
  14. MULTIVITAMIN [Concomitant]
  15. LEVAQUIN [Concomitant]
     Dosage: 500 MG, UNK
  16. CARBOPLATIN [Concomitant]
  17. DEXAMETHASONE [Concomitant]
     Dosage: 4 MG, UNK
  18. CHLORHEXIDINE GLUCONATE [Concomitant]
  19. ZOMETA [Suspect]
     Dosage: ONCE MONTHLY
     Dates: start: 20040201, end: 20061101
  20. ALEVE [Concomitant]
  21. PROTONIX [Concomitant]
     Dosage: 40 MG, UNK
  22. XELODA [Concomitant]
     Dosage: 500 MG, UNK
  23. DECADRON [Concomitant]
  24. TAMOXIFEN [Concomitant]
     Dosage: 20 MG, UNK
  25. ARIMIDEX [Concomitant]
     Dosage: 1 MG, UNK
  26. PERIDEX [Concomitant]
  27. PRILOSEC [Concomitant]
  28. LEXAPRO [Concomitant]
  29. ENALAPRIL MALEATE [Concomitant]
  30. OXYCODONE [Concomitant]
  31. CEPHALEXIN [Concomitant]
     Dosage: 250 MG, UNK

REACTIONS (29)
  - SPINAL COMPRESSION FRACTURE [None]
  - INJURY [None]
  - BACK PAIN [None]
  - PLEURAL EFFUSION [None]
  - OSTEOPENIA [None]
  - CHOLELITHIASIS [None]
  - ANAEMIA [None]
  - VOMITING [None]
  - SCAR [None]
  - METASTASES TO BONE [None]
  - FALL [None]
  - PAIN [None]
  - EMOTIONAL DISTRESS [None]
  - LUNG INFILTRATION [None]
  - COUGH [None]
  - OSTEONECROSIS OF JAW [None]
  - MALIGNANT ASCITES [None]
  - ABDOMINAL PAIN [None]
  - INFECTION [None]
  - TOOTH LOSS [None]
  - AVULSION FRACTURE [None]
  - NAUSEA [None]
  - GINGIVAL SWELLING [None]
  - METASTASES TO SPINE [None]
  - HEPATIC CYST [None]
  - DEPRESSED MOOD [None]
  - SPINAL OSTEOARTHRITIS [None]
  - ANHEDONIA [None]
  - GASTROOESOPHAGEAL REFLUX DISEASE [None]
